FAERS Safety Report 7586828-8 (Version None)
Quarter: 2011Q3

REPORT INFORMATION
  Report Type: 
  Country: None (occurrence: None)
  Receive Date: 20110701
  Receipt Date: 20110627
  Transmission Date: 20111222
  Serious: Yes (Hospitalization, Other)
  Sender: FDA-Public Use
  Company Number: US-SANOFI-AVENTIS-A03200701936

PATIENT
  Age: 72 Year
  Sex: Male
  Weight: 88 kg

DRUGS (43)
  1. FLOMAX [Concomitant]
     Route: 048
  2. RHINOCORT [Concomitant]
     Dosage: 1 PUFF TO EACH NOSTRIL EVERY DAY DOSE:1 PUFF(S)
     Route: 045
  3. GLEEVEC [Concomitant]
  4. GABAPENTIN [Concomitant]
     Dates: start: 20041101
  5. QUININE SULFATE [Concomitant]
  6. FUROSEMIDE [Concomitant]
     Dates: start: 20040501
  7. TOPROL-XL [Concomitant]
     Dates: start: 20040801
  8. ACETAMINOPHEN WITH PROPOXYPHENE HCL TAB [Concomitant]
     Dosage: 100/650 MG
  9. VALIUM [Concomitant]
  10. AVANDIA [Concomitant]
  11. GLUCOSAMINE [Concomitant]
  12. KLOR-CON [Concomitant]
     Dates: start: 20040405
  13. FLOMAX [Concomitant]
  14. FERROUS SULFATE TAB [Concomitant]
     Dates: start: 20040401
  15. FEXOFENADINE [Concomitant]
     Dates: start: 20040401
  16. FUROSEMIDE [Concomitant]
     Dates: start: 19920101
  17. ALBUTEROL SULFATE AUTOHALER [Concomitant]
     Dates: start: 20040501
  18. LEXAPRO [Concomitant]
     Dates: start: 20070101
  19. NITROGLYCERIN [Concomitant]
     Dates: start: 20060101
  20. NOVOLOG MIX 70/30 [Concomitant]
     Indication: TYPE 2 DIABETES MELLITUS
     Dosage: AS DIRECTED
  21. PROGLYCEM [Concomitant]
  22. COLCHICINE [Concomitant]
  23. TRICOR [Concomitant]
     Dates: start: 20040501
  24. TOPROL-XL [Concomitant]
     Dates: start: 20040701
  25. AMOXICILLIN [Concomitant]
     Dates: start: 20051101
  26. LEXAPRO [Concomitant]
     Dates: start: 20051101
  27. FOLIC ACID [Concomitant]
     Dates: start: 20051101
  28. NITROGLYCERIN [Concomitant]
     Route: 060
  29. CYMBALTA [Concomitant]
     Dates: start: 20080101
  30. FLUINDIONE [Concomitant]
  31. ARANESP [Concomitant]
  32. LIPITOR [Concomitant]
     Dates: start: 19920101
  33. ACCOLATE [Concomitant]
     Dates: start: 20040501
  34. ACTOS [Concomitant]
     Dates: start: 20040501
  35. NIFEREX [Concomitant]
     Dates: start: 20051201
  36. NEXIUM [Concomitant]
     Dates: start: 20080101
  37. CLOPIDOGREL BISULFATE [Suspect]
     Indication: STENT PLACEMENT
     Dosage: UNIT DOSE: 75 MG
     Route: 048
     Dates: start: 20040401, end: 20061003
  38. ASPIRIN [Suspect]
     Indication: STENT PLACEMENT
     Route: 048
     Dates: start: 20040401
  39. LIPITOR [Concomitant]
     Dates: start: 20040413
  40. WARFARIN SODIUM [Concomitant]
     Dates: start: 19920101
  41. NEXIUM [Concomitant]
     Dates: start: 20051201
  42. NAPROXEN [Concomitant]
     Route: 065
  43. VIAGRA [Concomitant]
     Route: 065
     Dates: start: 19960101, end: 19990101

REACTIONS (22)
  - SYNCOPE [None]
  - FATIGUE [None]
  - DEHYDRATION [None]
  - CARDIAC FAILURE CONGESTIVE [None]
  - GASTROINTESTINAL HAEMORRHAGE [None]
  - CONTUSION [None]
  - ATRIAL FIBRILLATION [None]
  - SEPSIS [None]
  - NAUSEA [None]
  - DYSPNOEA [None]
  - COLON CANCER STAGE I [None]
  - ASTHENIA [None]
  - MELAENA [None]
  - ANAEMIA [None]
  - RECTAL HAEMORRHAGE [None]
  - DIARRHOEA [None]
  - SINUSITIS [None]
  - PURPURA [None]
  - OEDEMA PERIPHERAL [None]
  - BLOODY DISCHARGE [None]
  - DEPRESSION [None]
  - VOMITING [None]
